FAERS Safety Report 22102899 (Version 1)
Quarter: 2023Q1

REPORT INFORMATION
  Report Type: Spontaneous
  Country: US (occurrence: US)
  Receive Date: 20230316
  Receipt Date: 20230316
  Transmission Date: 20230418
  Serious: No
  Sender: FDA-Public Use
  Company Number: US-UNITED THERAPEUTICS-UNT-2023-001742

PATIENT
  Age: 46 Year
  Sex: Male

DRUGS (3)
  1. REMODULIN [Suspect]
     Active Substance: TREPROSTINIL
     Indication: Pulmonary arterial hypertension
     Dosage: 0.02029 ?G/KG, CONTINUING
     Route: 058
  2. REMODULIN [Suspect]
     Active Substance: TREPROSTINIL
     Dosage: 0.02026 ?G/KG, CONTINUING
     Route: 058
  3. REMODULIN [Suspect]
     Active Substance: TREPROSTINIL
     Dosage: UNK, CONTINUING
     Route: 058
     Dates: start: 202105

REACTIONS (17)
  - Expired product administered [Unknown]
  - Product distribution issue [Unknown]
  - COVID-19 [Recovering/Resolving]
  - Hypersomnia [Unknown]
  - Paranasal sinus hypersecretion [Unknown]
  - Diarrhoea [Unknown]
  - Pain in jaw [Unknown]
  - Lethargy [Unknown]
  - Pain [Unknown]
  - Cough [Unknown]
  - Bronchitis [Unknown]
  - Needle issue [Unknown]
  - Nausea [Unknown]
  - Vomiting [Unknown]
  - Infusion site infection [Unknown]
  - Infusion site erythema [Unknown]
  - Infusion site irritation [Unknown]

NARRATIVE: CASE EVENT DATE: 20230101
